FAERS Safety Report 4679796-X (Version None)
Quarter: 2005Q2

REPORT INFORMATION
  Report Type: 
  Country: None (occurrence: None)
  Receive Date: 20050531
  Receipt Date: 20050525
  Transmission Date: 20051028
  Serious: Yes (Life-Threatening, Hospitalization)
  Sender: FDA-Public Use
  Company Number: J081-002-001962

PATIENT
  Age: 74 Year
  Sex: Female
  Weight: 43 kg

DRUGS (11)
  1. ARICEPT [Suspect]
     Indication: DEMENTIA ALZHEIMER'S TYPE
     Dosage: 3 MG, 1 IN 1 D, ORAL
     Route: 048
     Dates: start: 20050519, end: 20050520
  2. CONIEL (BENIDIPINE HYDROCHLORIDE) [Concomitant]
  3. LIPOVAS (SIMVASTATIN) [Concomitant]
  4. RYTHMODAN R (DISOPYRAMIDE) [Concomitant]
  5. PERSANTIN [Concomitant]
  6. URSODIOL [Concomitant]
  7. DOGMATYL (SULPIRIDE) [Concomitant]
  8. DEPAS (ETIZOLAM) [Concomitant]
  9. ALOSENN (ALOSENN) [Concomitant]
  10. ALPRAZOLAM [Concomitant]
  11. SAIKO-KA-RYUKOTSU-B OREI-TO (HERBAL PREPARATION) [Concomitant]

REACTIONS (3)
  - BLOOD PRESSURE INCREASED [None]
  - CONVULSION [None]
  - DEPRESSED LEVEL OF CONSCIOUSNESS [None]
